FAERS Safety Report 20307075 (Version 3)
Quarter: 2022Q1

REPORT INFORMATION
  Report Type: Spontaneous
  Country: US (occurrence: US)
  Receive Date: 20220107
  Receipt Date: 20220315
  Transmission Date: 20220424
  Serious: Yes (Other)
  Sender: FDA-Public Use
  Company Number: US-BEH-2021140076

PATIENT
  Age: 24 Year
  Sex: Male

DRUGS (4)
  1. IDELVION [Suspect]
     Active Substance: COAGULATION FACTOR IX RECOMBINANT HUMAN
     Indication: Factor IX deficiency
     Dosage: 2000 INTERNATIONAL UNIT, QW
     Route: 042
     Dates: start: 20191121
  2. IDELVION [Suspect]
     Active Substance: COAGULATION FACTOR IX RECOMBINANT HUMAN
     Indication: Factor IX deficiency
     Dosage: 2000 INTERNATIONAL UNIT, QW
     Route: 042
     Dates: start: 20191121
  3. IDELVION [Suspect]
     Active Substance: COAGULATION FACTOR IX RECOMBINANT HUMAN
     Dosage: 2000 INTERNATIONAL UNIT, QW
     Route: 042
     Dates: start: 20191122
  4. IDELVION [Suspect]
     Active Substance: COAGULATION FACTOR IX RECOMBINANT HUMAN
     Dosage: 2000 INTERNATIONAL UNIT, QW
     Route: 042
     Dates: start: 20191122

REACTIONS (7)
  - Haemarthrosis [Unknown]
  - No adverse event [Unknown]
  - Product dose omission issue [Unknown]
  - No adverse event [Unknown]
  - Exposure to SARS-CoV-2 [Unknown]
  - No adverse event [Unknown]
  - Product supply issue [Unknown]

NARRATIVE: CASE EVENT DATE: 20211221
